APPROVED DRUG PRODUCT: OPCON
Active Ingredient: NAPHAZOLINE HYDROCHLORIDE
Strength: 0.1%
Dosage Form/Route: SOLUTION/DROPS;OPHTHALMIC
Application: A087506 | Product #001
Applicant: BAUSCH AND LOMB PHARMACEUTICALS INC
Approved: Approved Prior to Jan 1, 1982 | RLD: No | RS: No | Type: DISCN